FAERS Safety Report 18231979 (Version 1)
Quarter: 2020Q3

REPORT INFORMATION
  Report Type: Spontaneous
  Country: US (occurrence: US)
  Receive Date: 20200903
  Receipt Date: 20200903
  Transmission Date: 20201103
  Serious: Yes (Hospitalization)
  Sender: FDA-Public Use
  Company Number: None

PATIENT
  Age: 76 Year
  Sex: Male
  Weight: 125.1 kg

DRUGS (1)
  1. ROSUVASTATIN. [Suspect]
     Active Substance: ROSUVASTATIN

REACTIONS (1)
  - Immune-mediated myositis [None]

NARRATIVE: CASE EVENT DATE: 20200616
